FAERS Safety Report 23071297 (Version 1)
Quarter: 2023Q4

REPORT INFORMATION
  Report Type: Spontaneous
  Country: JP (occurrence: JP)
  Receive Date: 20231016
  Receipt Date: 20231016
  Transmission Date: 20240110
  Serious: Yes (Other)
  Sender: FDA-Public Use
  Company Number: JP-TAIHO-2023-008525

PATIENT
  Age: 77 Year
  Sex: Female

DRUGS (2)
  1. ABRAXANE [Suspect]
     Active Substance: PACLITAXEL
     Indication: Breast cancer
     Dosage: WITH SUSPENSION?DAILY DOSE: 260 MILLIGRAM(S)/SQ. METER
     Route: 041
     Dates: start: 202104
  2. ABRAXANE [Suspect]
     Active Substance: PACLITAXEL
     Dosage: 18 CYCLES?DAILY DOSE: 260 MILLIGRAM(S)/SQ. METER
     Route: 041
     Dates: start: 202304

REACTIONS (1)
  - Facial paralysis [Unknown]
